FAERS Safety Report 14409035 (Version 2)
Quarter: 2018Q1

REPORT INFORMATION
  Report Type: Spontaneous
  Country: US (occurrence: US)
  Receive Date: 20180119
  Receipt Date: 20180305
  Transmission Date: 20180509
  Serious: No
  Sender: FDA-Public Use
  Company Number: US-LEO PHARMA-306977

PATIENT
  Age: 59 Year
  Sex: Male

DRUGS (1)
  1. PICATO [Suspect]
     Active Substance: INGENOL MEBUTATE
     Indication: ACTINIC KERATOSIS
     Route: 061
     Dates: start: 20180110, end: 20180112

REACTIONS (7)
  - Rhinorrhoea [Recovered/Resolved]
  - Application site pain [Unknown]
  - Application site pain [Recovered/Resolved]
  - Drug administration error [Unknown]
  - Discomfort [Recovered/Resolved]
  - Throat irritation [Recovered/Resolved]
  - Application site exfoliation [Not Recovered/Not Resolved]

NARRATIVE: CASE EVENT DATE: 20180110
